FAERS Safety Report 16554788 (Version 2)
Quarter: 2019Q4

REPORT INFORMATION
  Report Type: Report from Study
  Country: None (occurrence: US)
  Receive Date: 20190710
  Receipt Date: 20191008
  Transmission Date: 20200122
  Serious: Yes (Hospitalization)
  Sender: FDA-Public Use
  Company Number: US-ABBVIE-19K-163-2847769-00

PATIENT
  Sex: Female

DRUGS (1)
  1. HUMIRA [Suspect]
     Active Substance: ADALIMUMAB
     Indication: RHEUMATOID ARTHRITIS
     Route: 058
     Dates: start: 20190323, end: 201908

REACTIONS (4)
  - Hypoaesthesia [Unknown]
  - Drug ineffective [Unknown]
  - Lung disorder [Unknown]
  - Muscular weakness [Unknown]

NARRATIVE: CASE EVENT DATE: 2019
